FAERS Safety Report 5200230-5 (Version None)
Quarter: 2007Q1

REPORT INFORMATION
  Report Type: 
  Country: None (occurrence: None)
  Receive Date: 20070103
  Receipt Date: 20061219
  Transmission Date: 20070707
  Serious: Yes (Hospitalization)
  Sender: FDA-Public Use
  Company Number: GXKR2006US08321

PATIENT
  Age: 28 Year
  Sex: Female

DRUGS (2)
  1. DILTIAZEM [Suspect]
     Dosage: 100 DF, ONCE/SINGLE, ORAL
     Route: 048
  2. HYDROXYZINE [Suspect]
     Dosage: 100 DF, ONCE/SINGLE, ORAL
     Route: 048

REACTIONS (9)
  - ABDOMINAL PAIN [None]
  - BLOOD PRESSURE DIASTOLIC DECREASED [None]
  - HYPOXIA [None]
  - INTENTIONAL OVERDOSE [None]
  - PLEURAL EFFUSION [None]
  - PULMONARY CONGESTION [None]
  - PULMONARY VASCULAR DISORDER [None]
  - RALES [None]
  - SUICIDE ATTEMPT [None]
